FAERS Safety Report 10053994 (Version 1)
Quarter: 2014Q2

REPORT INFORMATION
  Report Type: Spontaneous
  Country: US (occurrence: US)
  Receive Date: 20140402
  Receipt Date: 20140402
  Transmission Date: 20141212
  Serious: No
  Sender: FDA-Public Use
  Company Number: US-AMGEN-USASP2014017043

PATIENT
  Age: 55 Year
  Sex: Female

DRUGS (2)
  1. ENBREL [Suspect]
     Indication: RHEUMATOID ARTHRITIS
     Dosage: UNK UNK, QWK
     Route: 065
     Dates: start: 20120225, end: 201307
  2. HUMIRA [Concomitant]
     Indication: PRODUCT USED FOR UNKNOWN INDICATION
     Dosage: UNK
     Route: 065
     Dates: start: 201307

REACTIONS (4)
  - Arthralgia [Not Recovered/Not Resolved]
  - Abdominal distension [Recovered/Resolved]
  - Injection site discolouration [Not Recovered/Not Resolved]
  - Injection site pruritus [Recovered/Resolved]
